FAERS Safety Report 7366851-9 (Version None)
Quarter: 2011Q1

REPORT INFORMATION
  Report Type: 
  Country: None (occurrence: None)
  Receive Date: 20110317
  Receipt Date: 20110317
  Transmission Date: 20110831
  Serious: Yes (Life-Threatening)
  Sender: FDA-Public Use
  Company Number: None

PATIENT
  Age: 71 Year
  Sex: Male
  Weight: 77.1115 kg

DRUGS (1)
  1. FOSPHENYTOIN [Suspect]
     Indication: CONVULSION
     Dosage: 800 MG ONCE IV BOLUS
     Route: 042
     Dates: start: 20110306, end: 20110306

REACTIONS (4)
  - INFUSION RELATED REACTION [None]
  - CONVULSION [None]
  - HYPOTENSION [None]
  - HEART RATE IRREGULAR [None]
